FAERS Safety Report 14634891 (Version 1)
Quarter: 2018Q1

REPORT INFORMATION
  Report Type: Spontaneous
  Country: US (occurrence: US)
  Receive Date: 20180313
  Receipt Date: 20180313
  Transmission Date: 20180509
  Serious: No
  Sender: FDA-Public Use
  Company Number: None

PATIENT
  Age: 15 Year
  Sex: Female
  Weight: 41.73 kg

DRUGS (1)
  1. SERTRALINE [Suspect]
     Active Substance: SERTRALINE HYDROCHLORIDE
     Indication: DEPRESSION
     Dosage: AM
     Route: 048
     Dates: start: 20180108, end: 20180120

REACTIONS (3)
  - Nausea [None]
  - Drug effect incomplete [None]
  - Product substitution issue [None]

NARRATIVE: CASE EVENT DATE: 20180212
